FAERS Safety Report 7411029-3 (Version None)
Quarter: 2011Q2

REPORT INFORMATION
  Report Type: 
  Country: None (occurrence: None)
  Receive Date: 20110413
  Receipt Date: 20110331
  Transmission Date: 20111010
  Serious: Yes (Hospitalization, Other)
  Sender: FDA-Public Use
  Company Number: JP-JNJFOC-20110101314

PATIENT
  Sex: Female
  Weight: 37 kg

DRUGS (11)
  1. DUROTEP MT [Suspect]
     Route: 062
  2. MAGMITT [Concomitant]
     Indication: CONSTIPATION
     Route: 048
  3. DUROTEP MT [Suspect]
     Route: 062
  4. RIVOTRIL [Concomitant]
     Indication: INSOMNIA
     Route: 048
  5. TRYPTANOL [Concomitant]
     Indication: NEUROPATHY PERIPHERAL
     Route: 048
  6. GABAPENTIN [Concomitant]
     Indication: NEUROPATHY PERIPHERAL
     Route: 048
  7. REVLIMID [Suspect]
     Indication: MULTIPLE MYELOMA
     Route: 048
  8. REVLIMID [Suspect]
     Route: 048
  9. DUROTEP MT [Suspect]
     Indication: CANCER PAIN
     Dosage: 2 PATCHES WERE APPLIED
     Route: 062
  10. VOLTAREN [Concomitant]
     Indication: CANCER PAIN
     Route: 054
  11. OXINORM (OXYCODONE HYDROCHLORIDE) [Concomitant]
     Indication: CANCER PAIN
     Route: 048

REACTIONS (5)
  - STUPOR [None]
  - LOSS OF CONSCIOUSNESS [None]
  - EXPOSURE TO EXTREME TEMPERATURE [None]
  - WRONG TECHNIQUE IN DRUG USAGE PROCESS [None]
  - PYREXIA [None]
